FAERS Safety Report 5739305-0 (Version None)
Quarter: 2008Q2

REPORT INFORMATION
  Report Type: 
  Country: None (occurrence: None)
  Receive Date: 20080515
  Receipt Date: 20080515
  Transmission Date: 20081010
  Serious: Yes (Death)
  Sender: FDA-Public Use
  Company Number: None

PATIENT
  Sex: Female
  Weight: 4.1 kg

DRUGS (1)
  1. HEPARIN [Suspect]
     Indication: POSTOPERATIVE THROMBOSIS
     Dosage: 300 U  X1 PER CATHERTER 013; 250 U X1 BOLUS 017; HEPARIN IV DRIP
     Route: 040
     Dates: start: 20071217

REACTIONS (4)
  - CATHETER SITE HAEMORRHAGE [None]
  - POSTOPERATIVE THROMBOSIS [None]
  - RESPIRATORY DISORDER [None]
  - RETROPERITONEAL HAEMORRHAGE [None]
